FAERS Safety Report 22653881 (Version 1)
Quarter: 2023Q2

REPORT INFORMATION
  Report Type: Spontaneous
  Country: US (occurrence: US)
  Receive Date: 20230629
  Receipt Date: 20230629
  Transmission Date: 20230722
  Serious: Yes (Other)
  Sender: FDA-Public Use
  Company Number: US-002147023-NVSC2023US145458

PATIENT
  Sex: Female
  Weight: 2.14 kg

DRUGS (17)
  1. PANTOPRAZOLE [Suspect]
     Active Substance: PANTOPRAZOLE
     Indication: Foetal exposure during pregnancy
     Dosage: (MATERNAL DOSE:80 MG, BID)
     Route: 064
  2. VITAMIN B12 [Suspect]
     Active Substance: CYANOCOBALAMIN
     Indication: Foetal exposure during pregnancy
     Dosage: UNK
     Route: 064
  3. VITAMIN B12 [Suspect]
     Active Substance: CYANOCOBALAMIN
     Dosage: UNK
     Route: 062
  4. IRON SUCROSE [Suspect]
     Active Substance: IRON SUCROSE
     Indication: Foetal exposure during pregnancy
     Dosage: UNK
     Route: 064
  5. IRON SUCROSE [Suspect]
     Active Substance: IRON SUCROSE
     Dosage: UNK
     Route: 064
  6. VITAMIN D3 [Suspect]
     Active Substance: CHOLECALCIFEROL
     Indication: Foetal exposure during pregnancy
     Dosage: UNK
     Route: 064
  7. VITAMIN D3 [Suspect]
     Active Substance: CHOLECALCIFEROL
     Dosage: UNK
     Route: 064
  8. VITAMIN C [Suspect]
     Active Substance: ASCORBIC ACID
     Indication: Foetal exposure during pregnancy
     Dosage: UNK
     Route: 064
  9. VITAMIN C [Suspect]
     Active Substance: ASCORBIC ACID
     Dosage: UNK
     Route: 064
  10. FOLATE SODIUM [Suspect]
     Active Substance: FOLATE SODIUM
     Indication: Foetal exposure during pregnancy
     Dosage: UNK
     Route: 064
  11. FUROSEMIDE [Suspect]
     Active Substance: FUROSEMIDE
     Indication: Foetal exposure during pregnancy
     Dosage: (MATERNAL DOSE: 10 MG, QD)
     Route: 064
  12. TRANEXAMIC ACID [Suspect]
     Active Substance: TRANEXAMIC ACID
     Indication: Foetal exposure during pregnancy
     Dosage: MATERNAL DOSE: 3 G, Q24H (3 G INFUSION OVER 24 H)
     Route: 064
  13. DOCUSATE [Suspect]
     Active Substance: DOCUSATE
     Indication: Foetal exposure during pregnancy
     Dosage: MATERNAL DOSE:100 MG, BID
     Route: 064
  14. POLYETHYLENE GLYCOL [Suspect]
     Active Substance: POLYETHYLENE GLYCOL
     Indication: Foetal exposure during pregnancy
     Dosage: UNK
     Route: 064
  15. IRON [Suspect]
     Active Substance: IRON
     Indication: Foetal exposure during pregnancy
     Dosage: UNK
     Route: 064
  16. FERROUS SULFATE [Suspect]
     Active Substance: FERROUS SULFATE
     Indication: Foetal exposure during pregnancy
     Dosage: UNK
     Route: 064
  17. MAGNESIUM OXIDE [Suspect]
     Active Substance: MAGNESIUM OXIDE
     Indication: Foetal exposure during pregnancy
     Dosage: MATERNAL DOSE: 400 MG, BID
     Route: 064

REACTIONS (3)
  - Foetal growth restriction [Unknown]
  - Low birth weight baby [Unknown]
  - Foetal exposure during pregnancy [Unknown]
